FAERS Safety Report 6878217-6 (Version None)
Quarter: 2010Q3

REPORT INFORMATION
  Report Type: 
  Country: None (occurrence: None)
  Receive Date: 20100728
  Receipt Date: 20100721
  Transmission Date: 20110219
  Serious: Yes (Other)
  Sender: FDA-Public Use
  Company Number: US-PFIZER INC-2010091922

PATIENT
  Sex: Female

DRUGS (1)
  1. CHANTIX [Suspect]
     Dosage: UNK
     Dates: start: 20060902

REACTIONS (5)
  - ABNORMAL DREAMS [None]
  - ANXIETY [None]
  - FEAR [None]
  - SUICIDE ATTEMPT [None]
  - WITHDRAWAL SYNDROME [None]
